FAERS Safety Report 5805906-4 (Version None)
Quarter: 2008Q3

REPORT INFORMATION
  Report Type: 
  Country: None (occurrence: None)
  Receive Date: 20080708
  Receipt Date: 20080624
  Transmission Date: 20090109
  Serious: Yes (Other)
  Sender: FDA-Public Use
  Company Number: 220002L08USA

PATIENT
  Age: 8 Year
  Sex: Female

DRUGS (1)
  1. SOMATROPIN (SOMATROPIN) [Suspect]
     Indication: TURNER'S SYNDROME
     Dosage: 0.05 MG/KG, 1 IN 1 DAYS

REACTIONS (6)
  - BLOOD CHOLESTEROL INCREASED [None]
  - FAILURE TO THRIVE [None]
  - HEPATIC ADENOMA [None]
  - HEPATIC NEOPLASM MALIGNANT [None]
  - LIVER TRANSPLANT [None]
  - PLATELET COUNT INCREASED [None]
